FAERS Safety Report 4948705-8 (Version None)
Quarter: 2006Q1

REPORT INFORMATION
  Report Type: 
  Country: None (occurrence: None)
  Receive Date: 20060313
  Receipt Date: 20060223
  Transmission Date: 20060701
  Serious: Yes (Death, Life-Threatening, Hospitalization, Other)
  Sender: FDA-Public Use
  Company Number: 2005159763

PATIENT
  Age: 36 Year
  Sex: Female
  Weight: 62 kg

DRUGS (1)
  1. SU-011,248 (SUNITINIB MALATE) [Suspect]
     Indication: GASTROINTESTINAL STROMAL TUMOUR
     Dosage: 50 (UNIT NOT PROVIDED) (QD), ORAL
     Route: 048
     Dates: start: 20051107, end: 20051124

REACTIONS (6)
  - ANAEMIA [None]
  - ASCITES [None]
  - DISEASE PROGRESSION [None]
  - FATIGUE [None]
  - GENERAL PHYSICAL HEALTH DETERIORATION [None]
  - TUMOUR HAEMORRHAGE [None]
